FAERS Safety Report 9638801 (Version 1)
Quarter: 2013Q4

REPORT INFORMATION
  Report Type: Spontaneous
  Country: US (occurrence: US)
  Receive Date: 20131022
  Receipt Date: 20131022
  Transmission Date: 20140711
  Serious: No
  Sender: FDA-Public Use
  Company Number: US-BRISTOL-MYERS SQUIBB COMPANY-19167873

PATIENT
  Age: 77 Year
  Sex: Male
  Weight: 106.57 kg

DRUGS (6)
  1. ELIQUIS [Suspect]
     Indication: CARDIAC VALVE DISEASE
  2. CARVEDILOL [Concomitant]
  3. FUROSEMIDE [Concomitant]
  4. METOLAZONE [Concomitant]
  5. SPIRONOLACTONE [Concomitant]
  6. POTASSIUM [Concomitant]

REACTIONS (1)
  - Haematuria [Unknown]
